FAERS Safety Report 25680046 (Version 1)
Quarter: 2025Q3

REPORT INFORMATION
  Report Type: Report from Study
  Country: US (occurrence: US)
  Receive Date: 20250814
  Receipt Date: 20250814
  Transmission Date: 20251020
  Serious: No
  Sender: SUNOVION
  Company Number: US-SUMITOMO PHARMA SWITZERLAND GMBH-2024SPA005023

PATIENT
  Age: 71 Year
  Sex: Male

DRUGS (9)
  1. ORGOVYX [Suspect]
     Active Substance: RELUGOLIX
     Indication: Prostate cancer
     Dosage: 360 MG, SINGLE
     Route: 048
  2. ORGOVYX [Suspect]
     Active Substance: RELUGOLIX
     Dosage: 120 MG, QD
     Route: 048
  3. AVODART [Concomitant]
     Active Substance: DUTASTERIDE
  4. ESTRADIOL [Concomitant]
     Active Substance: ESTRADIOL
  5. SIMVASTATIN [Concomitant]
     Active Substance: SIMVASTATIN
  6. TADALAFIL [Concomitant]
     Active Substance: TADALAFIL
  7. XTANDI [Concomitant]
     Active Substance: ENZALUTAMIDE
  8. ARGININE [Concomitant]
     Active Substance: ARGININE
  9. VITAMIN D3 [Concomitant]
     Active Substance: CHOLECALCIFEROL

REACTIONS (3)
  - Fatigue [Unknown]
  - Arthralgia [Unknown]
  - Asthenia [Unknown]
